FAERS Safety Report 9875982 (Version 1)
Quarter: 2014Q1

REPORT INFORMATION
  Report Type: Spontaneous
  Country: GB (occurrence: None)
  Receive Date: 20140204
  Receipt Date: 20140204
  Transmission Date: 20141002
  Serious: Yes (Other)
  Sender: FDA-Public Use
  Company Number: AUR-APL-2014-00681

PATIENT
  Age: 83 Year
  Sex: Male

DRUGS (12)
  1. SERTRALINE (SERTRALINE) [Suspect]
     Indication: IMPULSE-CONTROL DISORDER
     Dates: start: 20131206, end: 20131220
  2. CLONAZEPAM (CLONAZEPAM) (CLONAZEPAM) [Concomitant]
  3. CO-AMILOFRUSE (FRUMIL) [Concomitant]
  4. CO-CODAMOL (PANADEINE CO) [Concomitant]
  5. GABAPENTIN (GABAPENTIN) [Concomitant]
  6. INFLUENZA VIRUS (INFLUENZA VACCINE) [Concomitant]
  7. LANSOPRAZOLE (LANSOPRAZOLE) [Concomitant]
  8. LANSOPRAZOLE (LANSOPRAZOLE) [Concomitant]
  9. LEVOTHYROXINE (LEVOTHYROXINE) [Concomitant]
  10. MADOPAR (MADOPAR) [Concomitant]
  11. MOVICOL (POLYETHYYL.GLYC.W/POTAS.CHLOR./SOD. BICARB.) [Concomitant]
  12. SIMVASTATIN (SIMVASTATIN) [Concomitant]

REACTIONS (5)
  - Abnormal dreams [None]
  - Swollen tongue [None]
  - Oedema mouth [None]
  - Laryngeal oedema [None]
  - Condition aggravated [None]
